FAERS Safety Report 14564358 (Version 6)
Quarter: 2019Q4

REPORT INFORMATION
  Report Type: Spontaneous
  Country: US (occurrence: US)
  Receive Date: 20180222
  Receipt Date: 20191111
  Transmission Date: 20200122
  Serious: No
  Sender: FDA-Public Use
  Company Number: US-ACTELION-A-US2018-166359

PATIENT
  Sex: Female
  Weight: 58.96 kg

DRUGS (2)
  1. UPTRAVI [Concomitant]
     Active Substance: SELEXIPAG
     Route: 048
  2. OPSUMIT [Suspect]
     Active Substance: MACITENTAN
     Indication: PULMONARY ARTERIAL HYPERTENSION
     Dosage: 10 MG, QD
     Route: 048
     Dates: start: 20180112

REACTIONS (13)
  - Unevaluable event [Unknown]
  - Hot flush [Unknown]
  - Myalgia [Unknown]
  - Arthralgia [Unknown]
  - Peripheral swelling [Not Recovered/Not Resolved]
  - Dizziness [Unknown]
  - Blood pressure systolic decreased [Unknown]
  - Blood calcium increased [Unknown]
  - Nasal congestion [Unknown]
  - Dyspnoea [Unknown]
  - Somnolence [Unknown]
  - Concomitant disease aggravated [Unknown]
  - Constipation [Unknown]
